FAERS Safety Report 6645958-5 (Version None)
Quarter: 2010Q1

REPORT INFORMATION
  Report Type: 
  Country: None (occurrence: None)
  Receive Date: 20100323
  Receipt Date: 20100319
  Transmission Date: 20100710
  Serious: Yes (Death)
  Sender: FDA-Public Use
  Company Number: PHHY2010MX17370

PATIENT
  Age: 59 Year
  Sex: Male

DRUGS (1)
  1. LAMISIL [Suspect]
     Dosage: 1 TABLET PER DAY
     Route: 048
     Dates: start: 20100101

REACTIONS (1)
  - INFARCTION [None]
